FAERS Safety Report 5144134-5 (Version None)
Quarter: 2006Q4

REPORT INFORMATION
  Report Type: 
  Country: None (occurrence: None)
  Receive Date: 20061106
  Receipt Date: 20061004
  Transmission Date: 20070319
  Serious: Yes (Hospitalization)
  Sender: FDA-Public Use
  Company Number: US-KINGPHARMUSA00001-K200601286

PATIENT
  Age: 92 Year
  Sex: Female

DRUGS (5)
  1. FLORINEF [Suspect]
     Indication: HYPOTENSION
     Dosage: .1 MG, BID
     Route: 048
     Dates: start: 20050101, end: 20061004
  2. NAMENDA [Suspect]
     Indication: DEMENTIA ALZHEIMER'S TYPE
     Dosage: 10 MG, BID
     Route: 048
     Dates: start: 20040101, end: 20061004
  3. NAMENDA [Suspect]
     Dates: start: 20061001
  4. REMINYL /00382001/ [Concomitant]
     Dates: start: 20040101
  5. LIPITOR [Concomitant]
     Dates: start: 20040101

REACTIONS (6)
  - BLOOD POTASSIUM DECREASED [None]
  - DEHYDRATION [None]
  - FATIGUE [None]
  - GASTRIC ULCER [None]
  - HELICOBACTER INFECTION [None]
  - SOMNOLENCE [None]
